FAERS Safety Report 6634537-1 (Version None)
Quarter: 2010Q1

REPORT INFORMATION
  Report Type: 
  Country: None (occurrence: None)
  Receive Date: 20100312
  Receipt Date: 20100312
  Transmission Date: 20100710
  Serious: No
  Sender: FDA-Public Use
  Company Number: None

PATIENT
  Sex: Female
  Weight: 48.9885 kg

DRUGS (1)
  1. RECLAST [Suspect]
     Indication: OSTEOPOROSIS
     Dosage: ONCE A YR. INFUSION
     Dates: start: 20100120

REACTIONS (3)
  - DRUG EFFECT DECREASED [None]
  - NECK PAIN [None]
  - NONSPECIFIC REACTION [None]
